FAERS Safety Report 8095245-6 (Version None)
Quarter: 2012Q1

REPORT INFORMATION
  Report Type: 
  Country: None (occurrence: None)
  Receive Date: 20120129
  Receipt Date: 20111230
  Transmission Date: 20120608
  Serious: Yes (Hospitalization)
  Sender: FDA-Public Use
  Company Number: US-ABBOTT-11P-163-0887823-00

PATIENT
  Sex: Male
  Weight: 92.162 kg

DRUGS (1)
  1. HUMIRA [Suspect]
     Indication: RHEUMATOID ARTHRITIS
     Dates: end: 20110601

REACTIONS (4)
  - WOUND [None]
  - THROMBOSIS [None]
  - PERIPHERAL VASCULAR DISORDER [None]
  - IMPAIRED HEALING [None]
